FAERS Safety Report 6743964-3 (Version None)
Quarter: 2010Q2

REPORT INFORMATION
  Report Type: 
  Country: None (occurrence: None)
  Receive Date: 20100525
  Receipt Date: 20100510
  Transmission Date: 20101027
  Serious: Yes (Hospitalization)
  Sender: FDA-Public Use
  Company Number: 011945

PATIENT
  Sex: Male

DRUGS (9)
  1. ROTIGOTINE (ROTIGOTINE) [Suspect]
     Indication: PARKINSON'S DISEASE
     Dosage: 4.5 MG TRANSDERMAL, 36 MG TRANSDERMAL
     Route: 062
     Dates: start: 20100126
  2. ROTIGOTINE (ROTIGOTINE) [Suspect]
     Indication: PARKINSON'S DISEASE
     Dosage: 4.5 MG TRANSDERMAL, 36 MG TRANSDERMAL
     Route: 062
     Dates: start: 20100323
  3. BENSERAZIDE HYDROCHLORIDE W/LEVODOPA [Concomitant]
  4. ENTACAPONE [Concomitant]
  5. DROXIDOPA [Concomitant]
  6. SELEGILINE HYDROCHLORIDE [Concomitant]
  7. NAFTOPIDIL [Concomitant]
  8. HYDROCORTISONE BUTYRATE PROPIONATE [Concomitant]
  9. DIPHENHYDRAMINE HYDROCHLORIDE [Concomitant]

REACTIONS (4)
  - ANXIETY [None]
  - DYSPNOEA [None]
  - INAPPROPRIATE ANTIDIURETIC HORMONE SECRETION [None]
  - NERVOUS SYSTEM DISORDER [None]
